FAERS Safety Report 8525686-1 (Version None)
Quarter: 2012Q3

REPORT INFORMATION
  Report Type: 
  Country: None (occurrence: None)
  Receive Date: 20120720
  Receipt Date: 20120712
  Transmission Date: 20120928
  Serious: No
  Sender: FDA-Public Use
  Company Number: US-009507513-1207USA003825

PATIENT

DRUGS (2)
  1. PEG-INTRON [Suspect]
     Indication: HEPATITIS C
     Dosage: UNK
     Route: 058
     Dates: start: 20120702, end: 20120711
  2. REBETOL [Suspect]

REACTIONS (4)
  - NAUSEA [None]
  - ANXIETY [None]
  - FATIGUE [None]
  - ASTHENIA [None]
